FAERS Safety Report 4885602-0 (Version None)
Quarter: 2005Q4

REPORT INFORMATION
  Report Type: 
  Country: None (occurrence: None)
  Receive Date: 20051220
  Receipt Date: 20050803
  Transmission Date: 20060501
  Serious: Yes (Hospitalization)
  Sender: FDA-Public Use
  Company Number: HQWYE692304AUG05

PATIENT
  Sex: Female

DRUGS (2)
  1. EFFEXOR XR [Suspect]
     Indication: DEPRESSION
     Dosage: 225 MG; SEE IMAGE
  2. CYMBALTA [Suspect]
     Dosage: 30 MG

REACTIONS (2)
  - CHILLS [None]
  - PYREXIA [None]
